FAERS Safety Report 17430437 (Version 1)
Quarter: 2020Q1

REPORT INFORMATION
  Report Type: Other
  Country: RU (occurrence: RU)
  Receive Date: 20200218
  Receipt Date: 20200218
  Transmission Date: 20200409
  Serious: Yes (Life-Threatening)
  Sender: FDA-Public Use
  Company Number: RU-PIERREL PHARMA S.P.A.-2020PIR00006

PATIENT
  Age: 49 Year
  Sex: Male

DRUGS (1)
  1. ORABLOC [Suspect]
     Active Substance: ARTICAINE HYDROCHLORIDE\EPINEPHRINE BITARTRATE
     Indication: INFILTRATION ANAESTHESIA
     Dosage: 1 DOSAGE UNITS, ONCE
     Dates: start: 20191014, end: 20191014

REACTIONS (2)
  - Angioedema [Recovered/Resolved]
  - Laryngeal oedema [Recovered/Resolved]

NARRATIVE: CASE EVENT DATE: 20191014
